FAERS Safety Report 10022000 (Version 2)
Quarter: 2015Q2

REPORT INFORMATION
  Report Type: Spontaneous
  Country: BG (occurrence: BG)
  Receive Date: 20140319
  Receipt Date: 20150618
  Transmission Date: 20150821
  Serious: Yes (Hospitalization, Other)
  Sender: FDA-Public Use
  Company Number: BG-009507513-1403BGR008675

PATIENT
  Age: 31 Year
  Sex: Female

DRUGS (5)
  1. VICTRELIS [Suspect]
     Active Substance: BOCEPREVIR
     Indication: CHRONIC HEPATITIS C
     Dosage: FORMULATION: HARD CAPSULES
     Route: 048
     Dates: end: 20121109
  2. REBETOL [Suspect]
     Active Substance: RIBAVIRIN
     Dosage: HARD CAPSULES, RBV DOSE REDUCTION DUE TO ANEMIA
     Route: 048
     Dates: start: 201204
  3. PEGINTRON [Suspect]
     Active Substance: PEGINTERFERON ALFA-2B
     Indication: CHRONIC HEPATITIS C
     Dosage: UNK UNK, QW
     Route: 058
     Dates: end: 2012
  4. PEGINTRON [Suspect]
     Active Substance: PEGINTERFERON ALFA-2B
     Dosage: PEGINTRON DOSE REDUCTION TO 0.4 ML, QW
     Route: 058
     Dates: start: 201204
  5. REBETOL [Suspect]
     Active Substance: RIBAVIRIN
     Indication: CHRONIC HEPATITIS
     Dosage: HARD CAPSULES
     Route: 048
     Dates: end: 2012

REACTIONS (3)
  - Anaemia [Recovered/Resolved]
  - Thrombocytopenia [Recovered/Resolved]
  - Neutropenia [Recovered/Resolved]

NARRATIVE: CASE EVENT DATE: 20111223
